FAERS Safety Report 15845151 (Version 2)
Quarter: 2023Q1

REPORT INFORMATION
  Report Type: Spontaneous
  Country: US (occurrence: US)
  Receive Date: 20190119
  Receipt Date: 20230317
  Transmission Date: 20230417
  Serious: No
  Sender: FDA-Public Use
  Company Number: US-JNJFOC-20190109681

PATIENT
  Sex: Male

DRUGS (2)
  1. RISPERDAL [Suspect]
     Active Substance: RISPERIDONE
     Indication: Product used for unknown indication
     Dosage: WITH VARYING DOSE OF 1 AND 2 MG
     Route: 048
     Dates: start: 20030906, end: 20031017
  2. RISPERDAL [Suspect]
     Active Substance: RISPERIDONE
     Dosage: WITH VARYING DOSE OF 1 AND 2 MG
     Route: 048
     Dates: start: 20121018, end: 20130429

REACTIONS (3)
  - Emotional disorder [Unknown]
  - Gynaecomastia [Unknown]
  - Galactorrhoea [Unknown]
